FAERS Safety Report 10607314 (Version 1)
Quarter: 2014Q4

REPORT INFORMATION
  Report Type: Spontaneous
  Country: US (occurrence: None)
  Receive Date: 20141124
  Receipt Date: 20141124
  Transmission Date: 20150529
  Serious: Yes (Other)
  Sender: FDA-Public Use
  Company Number: None

PATIENT
  Age: 52 Year
  Sex: Female
  Weight: 73.2 kg

DRUGS (4)
  1. DIPHENOX/ATROPINE [Concomitant]
  2. LEVETIRACETAM. [Concomitant]
     Active Substance: LEVETIRACETAM
  3. TYKERB [Concomitant]
     Active Substance: LAPATINIB DITOSYLATE
  4. CAPECITABINE. [Suspect]
     Active Substance: CAPECITABINE
     Indication: BREAST CANCER METASTATIC
     Dosage: 1500MG TWICE DAILY  X 14 DAYS  ORAL
     Route: 048
     Dates: start: 20140612, end: 20141119

REACTIONS (2)
  - Drug ineffective [None]
  - Disease progression [None]

NARRATIVE: CASE EVENT DATE: 20141119
